FAERS Safety Report 16028634 (Version 3)
Quarter: 2023Q4

REPORT INFORMATION
  Report Type: Spontaneous
  Country: IT (occurrence: IT)
  Receive Date: 20190304
  Receipt Date: 20231004
  Transmission Date: 20240110
  Serious: Yes (Other)
  Sender: FDA-Public Use
  Company Number: None

PATIENT
  Age: 19 Year
  Sex: Female

DRUGS (7)
  1. DOXORUBICIN HYDROCHLORIDE [Suspect]
     Active Substance: DOXORUBICIN HYDROCHLORIDE
     Indication: Adrenal gland cancer
     Dosage: 1 DOSAGE FORM, CYCLICAL
     Route: 042
     Dates: start: 20180301
  2. ETOPOSIDE [Suspect]
     Active Substance: ETOPOSIDE
     Indication: Adrenal gland cancer
     Dosage: 1 DOSAGE FORM, CYCLICAL
     Route: 042
     Dates: start: 20180301
  3. CISPLATIN [Suspect]
     Active Substance: CISPLATIN
     Indication: Adrenal gland cancer
     Dosage: 1 DOSAGE FORM, CYCLICAL
     Route: 042
     Dates: start: 20180301
  4. MITOTANE [Suspect]
     Active Substance: MITOTANE
     Indication: Adrenal gland cancer
     Dosage: 6 DOSAGE FORM, QD
     Route: 048
     Dates: start: 20180110
  5. MITOTANE [Suspect]
     Active Substance: MITOTANE
     Dosage: 4 DOSAGE FORM, QD
     Route: 048
  6. MITOTANE [Suspect]
     Active Substance: MITOTANE
     Dosage: 3 DOSAGE FORM, QD
     Route: 048
  7. ENANTONE LP [Concomitant]
     Active Substance: LEUPROLIDE ACETATE
     Indication: Product used for unknown indication
     Dosage: 3.75 MILLIGRAM
     Route: 065
     Dates: start: 20181119

REACTIONS (10)
  - Syncope [Recovering/Resolving]
  - Diarrhoea [Recovering/Resolving]
  - Alopecia [Recovering/Resolving]
  - Decreased appetite [Recovering/Resolving]
  - Vomiting [Recovering/Resolving]
  - Hypertransaminasaemia [Recovering/Resolving]
  - Nausea [Recovering/Resolving]
  - Dizziness [Recovering/Resolving]
  - Asthenia [Recovering/Resolving]
  - Vertigo [Recovering/Resolving]

NARRATIVE: CASE EVENT DATE: 20181119
